FAERS Safety Report 15966975 (Version 1)
Quarter: 2019Q1

REPORT INFORMATION
  Report Type: Spontaneous
  Country: US (occurrence: US)
  Receive Date: 20190215
  Receipt Date: 20190215
  Transmission Date: 20190418
  Serious: No
  Sender: FDA-Public Use
  Company Number: US-PHARMING-PHAUS2019000083

PATIENT

DRUGS (32)
  1. KALBITOR [Concomitant]
     Active Substance: ECALLANTIDE
  2. ACETAMINOPHEN. [Concomitant]
     Active Substance: ACETAMINOPHEN
  3. MAGNESIUM [Concomitant]
     Active Substance: MAGNESIUM
  4. PROTONIX 40 [Concomitant]
  5. AMLODIPINE BESYLATE. [Concomitant]
     Active Substance: AMLODIPINE BESYLATE
  6. DOXYCYCLINE. [Concomitant]
     Active Substance: DOXYCYCLINE
     Indication: SINUSITIS
     Dosage: 100 MG, BID
  7. VITAMIN C [Concomitant]
     Active Substance: ASCORBIC ACID
  8. BACLOFEN. [Concomitant]
     Active Substance: BACLOFEN
  9. TAKHZYRO [Concomitant]
     Active Substance: LANADELUMAB-FLYO
  10. NORMAL SALINE [Concomitant]
     Active Substance: SODIUM CHLORIDE
  11. MULTI-VITAMIN DAILY [Concomitant]
  12. TRAZODONE HYDROCHLORIDE. [Concomitant]
     Active Substance: TRAZODONE HYDROCHLORIDE
  13. ATORVASTATIN [Concomitant]
     Active Substance: ATORVASTATIN
  14. RUCONEST [Suspect]
     Active Substance: HUMAN C1-ESTERASE INHIBITOR
     Indication: HEREDITARY ANGIOEDEMA
     Dosage: 2100 IU, AS NEEDED
     Route: 042
     Dates: start: 20190105
  15. IBUPROFEN. [Concomitant]
     Active Substance: IBUPROFEN
  16. BIOTIN [Concomitant]
     Active Substance: BIOTIN
  17. FENOFIBRATE. [Concomitant]
     Active Substance: FENOFIBRATE
  18. HEPARIN [Concomitant]
     Active Substance: HEPARIN SODIUM
  19. SODIUM CHLORIDE. [Concomitant]
     Active Substance: SODIUM CHLORIDE
  20. DIPHENHYDRAMINE. [Concomitant]
     Active Substance: DIPHENHYDRAMINE
  21. ELETRIPTAN. [Concomitant]
     Active Substance: ELETRIPTAN
  22. REGLAN [Concomitant]
     Active Substance: METOCLOPRAMIDE HYDROCHLORIDE
  23. WELLBUTRIN [Concomitant]
     Active Substance: BUPROPION HYDROCHLORIDE
  24. ONDANSETRON [Concomitant]
     Active Substance: ONDANSETRON
  25. LEVOTHYROXINE SODIUM. [Concomitant]
     Active Substance: LEVOTHYROXINE SODIUM
  26. FIRAZYR [Concomitant]
     Active Substance: ICATIBANT ACETATE
  27. EPINEPHRINE. [Concomitant]
     Active Substance: EPINEPHRINE
  28. GLUCOSAMINE [Concomitant]
     Active Substance: GLUCOSAMINE
  29. BERINERT [Concomitant]
     Active Substance: HUMAN C1-ESTERASE INHIBITOR
  30. VENLAFAXINE [Concomitant]
     Active Substance: VENLAFAXINE HYDROCHLORIDE
  31. STERILE WATER [Concomitant]
     Active Substance: WATER
  32. FLONASE [Concomitant]
     Active Substance: FLUTICASONE PROPIONATE

REACTIONS (1)
  - Sinusitis [Unknown]
